FAERS Safety Report 12808285 (Version 2)
Quarter: 2017Q4

REPORT INFORMATION
  Report Type: Spontaneous
  Country: US (occurrence: US)
  Receive Date: 20161004
  Receipt Date: 20171205
  Transmission Date: 20180320
  Serious: No
  Sender: FDA-Public Use
  Company Number: US-TEVA-698183USA

PATIENT
  Age: 54 Year
  Sex: Female

DRUGS (19)
  1. CLONAZEPAM. [Concomitant]
     Active Substance: CLONAZEPAM
  2. PROGESTERONE. [Concomitant]
     Active Substance: PROGESTERONE
  3. BACLOFEN. [Concomitant]
     Active Substance: BACLOFEN
  4. AMANTADINE. [Concomitant]
     Active Substance: AMANTADINE HYDROCHLORIDE
  5. CYMBALTA [Concomitant]
     Active Substance: DULOXETINE HYDROCHLORIDE
  6. TOPAMAX [Concomitant]
     Active Substance: TOPIRAMATE
  7. TOPIRAMATE. [Concomitant]
     Active Substance: TOPIRAMATE
  8. KEPPRA [Concomitant]
     Active Substance: LEVETIRACETAM
  9. CLONAZEPAM. [Concomitant]
     Active Substance: CLONAZEPAM
  10. VIVELLE-DOT [Concomitant]
     Active Substance: ESTRADIOL
  11. CITALOPRAM [Concomitant]
     Active Substance: CITALOPRAM HYDROBROMIDE
  12. ALENDRONATE [Concomitant]
     Active Substance: ALENDRONATE SODIUM
  13. BUDEPRION XL [Concomitant]
     Active Substance: BUPROPION HYDROCHLORIDE
  14. LEVETIRACETAM. [Concomitant]
     Active Substance: LEVETIRACETAM
  15. COPAXONE [Suspect]
     Active Substance: GLATIRAMER ACETATE
     Indication: MULTIPLE SCLEROSIS
     Dosage: FORMULATION: PREFILLED SYRINGE
     Route: 058
     Dates: start: 20070228
  16. KLONOPIN [Concomitant]
     Active Substance: CLONAZEPAM
  17. ACYCLOVIR. [Concomitant]
     Active Substance: ACYCLOVIR
  18. PROVIGIL [Concomitant]
     Active Substance: MODAFINIL
  19. ARMOUR THYROID [Concomitant]
     Active Substance: THYROID, PORCINE

REACTIONS (4)
  - Vertigo [Recovering/Resolving]
  - Depression [Not Recovered/Not Resolved]
  - Fatigue [Not Recovered/Not Resolved]
  - Fall [Not Recovered/Not Resolved]

NARRATIVE: CASE EVENT DATE: 201608
